FAERS Safety Report 10290012 (Version 2)
Quarter: 2014Q3

REPORT INFORMATION
  Report Type: Spontaneous
  Country: US (occurrence: US)
  Receive Date: 20140710
  Receipt Date: 20140710
  Transmission Date: 20150326
  Serious: Yes (Hospitalization, Other)
  Sender: FDA-Public Use
  Company Number: US-PFIZER INC-2014166049

PATIENT
  Age: 15 Month
  Sex: Male
  Weight: 10 kg

DRUGS (1)
  1. MOTRIN [Suspect]
     Active Substance: IBUPROFEN
     Dosage: 5.6 G, (FOURTEEN 400 MG TABLETS)
     Route: 048

REACTIONS (4)
  - Overdose [Unknown]
  - Lethargy [Recovered/Resolved]
  - Accidental exposure to product [Unknown]
  - Metabolic acidosis [Recovered/Resolved]
